FAERS Safety Report 24172919 (Version 1)
Quarter: 2024Q3

REPORT INFORMATION
  Report Type: Spontaneous
  Country: ES (occurrence: ES)
  Receive Date: 20240805
  Receipt Date: 20240805
  Transmission Date: 20241016
  Serious: Yes (Other)
  Sender: CHEPLAPHARM
  Company Number: None

PATIENT
  Age: 57 Year
  Sex: Female

DRUGS (5)
  1. QUETIAPINE [Suspect]
     Active Substance: QUETIAPINE
     Indication: Depression
     Dosage: 200MG IN THE EVENING ORALLY?DAILY DOSE: 200 MILLIGRAM
     Route: 048
     Dates: start: 20230725
  2. CLONAZEPAM [Suspect]
     Active Substance: CLONAZEPAM
     Dosage: 3 MILLIGRAMS AT NIGHT ORALLY.?DAILY DOSE: 3 MILLIGRAM
     Route: 048
     Dates: start: 20231003
  3. VENLAFAXINE HYDROCHLORIDE [Suspect]
     Active Substance: VENLAFAXINE HYDROCHLORIDE
     Indication: Depression
     Dosage: 150MG AT BREAKFAST ORALLY.?DAILY DOSE: 150 MILLIGRAM
     Route: 048
     Dates: start: 20230725
  4. LORMETAZEPAM [Concomitant]
     Active Substance: LORMETAZEPAM
  5. ALPRAZOLAM [Concomitant]
     Active Substance: ALPRAZOLAM

REACTIONS (2)
  - Leukopenia [Not Recovered/Not Resolved]
  - Neutropenia [Not Recovered/Not Resolved]

NARRATIVE: CASE EVENT DATE: 20240710
